FAERS Safety Report 13051668 (Version 5)
Quarter: 2017Q2

REPORT INFORMATION
  Report Type: Spontaneous
  Country: SI (occurrence: SI)
  Receive Date: 20161221
  Receipt Date: 20170601
  Transmission Date: 20170830
  Serious: Yes (Death, Other)
  Sender: FDA-Public Use
  Company Number: SI-JNJFOC-20161216748

PATIENT

DRUGS (2)
  1. XARELTO [Suspect]
     Active Substance: RIVAROXABAN
     Indication: PRODUCT USED FOR UNKNOWN INDICATION
     Route: 048
  2. XARELTO [Suspect]
     Active Substance: RIVAROXABAN
     Indication: PRODUCT USED FOR UNKNOWN INDICATION
     Route: 048

REACTIONS (19)
  - Death [Fatal]
  - Post procedural haemorrhage [Unknown]
  - Central nervous system haemorrhage [Unknown]
  - Haemoptysis [Unknown]
  - Vertigo [Unknown]
  - Haematochezia [Unknown]
  - Conjunctival haemorrhage [Unknown]
  - Gingival bleeding [Unknown]
  - Genital haemorrhage [Unknown]
  - Haemorrhage subcutaneous [Unknown]
  - Gastrointestinal haemorrhage [Unknown]
  - Transient ischaemic attack [Unknown]
  - Epistaxis [Unknown]
  - Haematuria [Unknown]
  - Dizziness [Unknown]
  - Traumatic haemorrhage [Unknown]
  - Ischaemic stroke [Unknown]
  - Mouth haemorrhage [Unknown]
  - Menorrhagia [Unknown]
